FAERS Safety Report 8962171 (Version 1)
Quarter: 2012Q4

REPORT INFORMATION
  Report Type: 
  Country: JP (occurrence: JP)
  Receive Date: 20121212
  Receipt Date: 20121212
  Transmission Date: 20130627
  Serious: Yes (Other)
  Sender: FDA-Public Use
  Company Number: JP-ROCHE-1166989

PATIENT
  Age: 74 Year

DRUGS (1)
  1. ANEXATE [Suspect]
     Indication: PRODUCT USED FOR UNKNOWN INDICATION
     Route: 065

REACTIONS (3)
  - Bruxism [Unknown]
  - Palpitations [Unknown]
  - Chest discomfort [Unknown]
